FAERS Safety Report 9422922 (Version 1)
Quarter: 2013Q3

REPORT INFORMATION
  Report Type: Spontaneous
  Country: FR (occurrence: None)
  Receive Date: 20130710
  Receipt Date: 20130710
  Transmission Date: 20140515
  Serious: Yes (Hospitalization)
  Sender: FDA-Public Use
  Company Number: 2013036800

PATIENT
  Age: 72 Year
  Sex: Male

DRUGS (4)
  1. PRIVIGEN (IMMUNE GLOBULIN INTRAVENOUS (HUMAN) 10% LIQUID) [Suspect]
     Indication: HYPOGAMMAGLOBULINAEMIA
     Route: 042
     Dates: start: 20130514, end: 20130514
  2. MOPRAL (OMEPRAZOLE) [Concomitant]
  3. ZELITREX/ 01269701/ (VALACICLOVIR) [Concomitant]
  4. BACTRIM /00086101/ (BACTRIM/00086101) [Concomitant]

REACTIONS (6)
  - Diarrhoea haemorrhagic [None]
  - Pyrexia [None]
  - Asthenia [None]
  - Hyperhidrosis [None]
  - Rash [None]
  - Diarrhoea [None]
